FAERS Safety Report 14532165 (Version 1)
Quarter: 2018Q1

REPORT INFORMATION
  Report Type: Spontaneous
  Country: US (occurrence: US)
  Receive Date: 20180214
  Receipt Date: 20180214
  Transmission Date: 20180509
  Serious: Yes (Hospitalization)
  Sender: FDA-Public Use
  Company Number: US-BAYER-2018-025187

PATIENT
  Age: 87 Year
  Sex: Male
  Weight: 51 kg

DRUGS (10)
  1. ABACAVIR. [Concomitant]
     Active Substance: ABACAVIR
     Indication: HIV TEST POSITIVE
     Dosage: UNK
     Dates: start: 20171120
  2. MOXIFLOXACIN ORAL [Suspect]
     Active Substance: MOXIFLOXACIN
     Dosage: 400 MG, UNK
     Route: 048
     Dates: start: 20171103
  3. PROTIONAMIDE [Suspect]
     Active Substance: PROTIONAMIDE
     Indication: PRODUCT USED FOR UNKNOWN INDICATION
     Dosage: 500 MG, UNK
     Route: 048
     Dates: start: 20171103
  4. CYCLOSERINE. [Suspect]
     Active Substance: CYCLOSERINE
     Indication: PRODUCT USED FOR UNKNOWN INDICATION
     Dosage: 500 MG, UNK
     Route: 048
     Dates: start: 20171103, end: 20171122
  5. SULFAMETHOXAZOLE/TRIMETHOPRIM [Concomitant]
     Active Substance: SULFAMETHOXAZOLE\TRIMETHOPRIM
     Indication: PRODUCT USED FOR UNKNOWN INDICATION
     Dosage: UNK
     Dates: start: 20171103
  6. LAMIVUDINE. [Concomitant]
     Active Substance: LAMIVUDINE
     Indication: HIV TEST POSITIVE
     Dosage: UNK
     Dates: start: 20171120
  7. VITAMIN B6 [Concomitant]
     Active Substance: PYRIDOXINE HYDROCHLORIDE
     Dosage: UNK
  8. PYRAZINAMIDE. [Suspect]
     Active Substance: PYRAZINAMIDE
     Indication: PRODUCT USED FOR UNKNOWN INDICATION
     Dosage: 1600 MG, UNK
     Route: 048
  9. EFAVIRENZ. [Concomitant]
     Active Substance: EFAVIRENZ
     Indication: HIV TEST POSITIVE
     Dosage: UNK
     Dates: start: 20171120
  10. PAS [Suspect]
     Active Substance: AMINOSALICYLIC ACID
     Indication: PRODUCT USED FOR UNKNOWN INDICATION
     Dosage: 6 G, UNK
     Route: 048
     Dates: start: 20171103, end: 20171122

REACTIONS (2)
  - Asthenia [Unknown]
  - Vomiting [Not Recovered/Not Resolved]

NARRATIVE: CASE EVENT DATE: 20171115
